FAERS Safety Report 10594107 (Version 1)
Quarter: 2014Q4

REPORT INFORMATION
  Report Type: Spontaneous
  Country: DE (occurrence: DE)
  Receive Date: 20141119
  Receipt Date: 20141119
  Transmission Date: 20150529
  Serious: Yes (Congenital Anomaly, Other)
  Sender: FDA-Public Use
  Company Number: DE-LUNDBECK-DKLU1105718

PATIENT
  Age: 1 Day
  Sex: Male

DRUGS (15)
  1. KEPPRA [Suspect]
     Active Substance: LEVETIRACETAM
     Route: 064
  2. AMPICILLIN [Concomitant]
     Active Substance: AMPICILLIN
     Indication: PRODUCT USED FOR UNKNOWN INDICATION
  3. CEFUROXIME SODIUM. [Concomitant]
     Active Substance: CEFUROXIME SODIUM
     Indication: PRODUCT USED FOR UNKNOWN INDICATION
  4. VITAMIN B12 [Concomitant]
     Active Substance: CYANOCOBALAMIN
     Indication: PRODUCT USED FOR UNKNOWN INDICATION
  5. FRISIUM [Suspect]
     Active Substance: CLOBAZAM
     Indication: IDIOPATHIC GENERALISED EPILEPSY
     Route: 064
     Dates: end: 20131011
  6. VITAMIN B6 [Concomitant]
     Active Substance: PYRIDOXINE HYDROCHLORIDE
     Indication: PRODUCT USED FOR UNKNOWN INDICATION
  7. KEPPRA [Suspect]
     Active Substance: LEVETIRACETAM
     Indication: IDIOPATHIC GENERALISED EPILEPSY
     Route: 064
  8. TOPAMAX [Suspect]
     Active Substance: TOPIRAMATE
     Indication: IDIOPATHIC GENERALISED EPILEPSY
     Route: 064
     Dates: end: 20131011
  9. LORAZEPAM. [Concomitant]
     Active Substance: LORAZEPAM
     Indication: PRODUCT USED FOR UNKNOWN INDICATION
     Dates: start: 20130624
  10. PASPERTIN [Concomitant]
     Active Substance: METOCLOPRAMIDE HYDROCHLORIDE
     Indication: PRODUCT USED FOR UNKNOWN INDICATION
  11. ERGENYL CHRONO [Suspect]
     Active Substance: VALPROIC ACID
     Indication: IDIOPATHIC GENERALISED EPILEPSY
     Route: 064
     Dates: start: 20130625, end: 20131011
  12. KEPPRA [Suspect]
     Active Substance: LEVETIRACETAM
     Route: 064
     Dates: end: 20131011
  13. NEOSTIGMINE [Concomitant]
     Active Substance: NEOSTIGMINE
     Indication: PRODUCT USED FOR UNKNOWN INDICATION
  14. DIAZEPAM. [Concomitant]
     Active Substance: DIAZEPAM
     Indication: PRODUCT USED FOR UNKNOWN INDICATION
  15. FOLSAN [Concomitant]
     Active Substance: FOLIC ACID
     Indication: PRODUCT USED FOR UNKNOWN INDICATION

REACTIONS (11)
  - Premature baby [Recovering/Resolving]
  - Small for dates baby [Recovering/Resolving]
  - Prominent epicanthal folds [Not Recovered/Not Resolved]
  - Low set ears [Not Recovered/Not Resolved]
  - Atrial septal defect [Not Recovered/Not Resolved]
  - Retrognathia [Not Recovered/Not Resolved]
  - Metabolic acidosis [Recovered/Resolved]
  - Foetal exposure during pregnancy [Unknown]
  - Neonatal respiratory distress syndrome [Recovered/Resolved]
  - Bradycardia neonatal [Recovered/Resolved]
  - Floppy infant [Recovered/Resolved]

NARRATIVE: CASE EVENT DATE: 20131011
